FAERS Safety Report 7587242-1 (Version None)
Quarter: 2011Q3

REPORT INFORMATION
  Report Type: 
  Country: None (occurrence: None)
  Receive Date: 20110701
  Receipt Date: 20110622
  Transmission Date: 20111222
  Serious: Yes (Death, Other)
  Sender: FDA-Public Use
  Company Number: JP-AMGEN-JPNCT2011028771

PATIENT
  Age: 66 Year
  Sex: Male
  Weight: 72 kg

DRUGS (29)
  1. OXALIPLATIN [Suspect]
     Indication: COLORECTAL CANCER
     Route: 041
     Dates: start: 20100811, end: 20101130
  2. FLUOROURACIL [Suspect]
     Route: 041
     Dates: start: 20100811, end: 20101130
  3. LEUCOVORIN CALCIUM [Suspect]
     Route: 041
     Dates: start: 20101201, end: 20110215
  4. CHLOR-TRIMETON [Concomitant]
     Dosage: UNK
     Route: 042
  5. BUFFERIN [Concomitant]
     Dosage: UNK
     Route: 048
  6. ANTIHISTAMINES [Concomitant]
     Indication: PROPHYLAXIS
     Dosage: UNK
     Route: 065
  7. MINOCYCLINE HCL [Concomitant]
     Dosage: UNK
     Route: 048
  8. FLUOROURACIL [Suspect]
     Route: 041
     Dates: start: 20101201, end: 20110215
  9. IRINOTECAN HCL [Suspect]
     Indication: COLORECTAL CANCER
     Route: 041
     Dates: start: 20101201, end: 20110215
  10. DECADRON [Concomitant]
     Dosage: UNK
     Route: 042
  11. DALACIN-T [Concomitant]
     Dosage: UNK
     Route: 062
  12. PURSENNID [Concomitant]
     Dosage: UNK
     Route: 048
  13. LASIX [Concomitant]
     Dosage: UNK
     Route: 048
  14. PANITUMUMAB [Suspect]
     Indication: COLORECTAL CANCER
     Dosage: 6 MG/KG, Q2WK
     Route: 041
     Dates: start: 20100811, end: 20110413
  15. FLUOROURACIL [Suspect]
     Route: 040
     Dates: start: 20101201, end: 20110215
  16. LEUCOVORIN CALCIUM [Suspect]
     Indication: COLORECTAL CANCER
     Route: 041
     Dates: start: 20100811, end: 20101130
  17. DIPHENHYDRAMINE HCL [Concomitant]
     Dosage: UNK
     Route: 048
  18. NAUZELIN [Concomitant]
     Dosage: UNK
     Route: 048
  19. OXYCONTIN [Concomitant]
     Dosage: UNK
     Route: 048
  20. FLUOROURACIL [Suspect]
     Indication: COLORECTAL CANCER
     Route: 040
     Dates: start: 20100811, end: 20101130
  21. HIRUDOID [Concomitant]
     Dosage: UNK
     Route: 062
  22. TANATRIL [Concomitant]
     Dosage: UNK
     Route: 048
  23. CARVEDILOL [Concomitant]
     Dosage: UNK
     Route: 048
  24. CORTICOSTEROIDS [Concomitant]
     Indication: PROPHYLAXIS
     Dosage: UNK
     Route: 065
  25. KYTRIL [Concomitant]
     Dosage: UNK
     Route: 042
  26. AMLODIPINE [Concomitant]
     Dosage: UNK
     Route: 048
  27. MAGNESOL [Concomitant]
     Dosage: UNK
     Route: 042
  28. MYSER [Concomitant]
     Dosage: UNK
     Route: 062
  29. FENTOS [Concomitant]
     Dosage: UNK
     Route: 062

REACTIONS (9)
  - DERMATITIS ACNEIFORM [None]
  - PARONYCHIA [None]
  - PAIN [None]
  - STOMATITIS [None]
  - OEDEMA PERIPHERAL [None]
  - HYPOAESTHESIA [None]
  - BLOOD MAGNESIUM DECREASED [None]
  - ASCITES [None]
  - COLORECTAL CANCER [None]
